FAERS Safety Report 4450002-4 (Version None)
Quarter: 2004Q3

REPORT INFORMATION
  Report Type: 
  Country: None (occurrence: None)
  Receive Date: 20040910
  Receipt Date: 20040709
  Transmission Date: 20050211
  Serious: Yes (Other)
  Sender: FDA-Public Use
  Company Number: S04-USA-03938-01

PATIENT
  Age: 20 Year
  Sex: Female

DRUGS (6)
  1. LEXAPRO [Suspect]
     Indication: ANXIETY
     Dosage: 25 MG QD PO
     Route: 048
     Dates: start: 20031001, end: 20040714
  2. LEXAPRO [Suspect]
     Indication: DEPRESSION
     Dosage: 25 MG QD PO
     Route: 048
     Dates: start: 20031001, end: 20040714
  3. LEXAPRO [Suspect]
     Indication: ANXIETY
     Dosage: 30 MG QD PO
     Route: 048
     Dates: start: 20040715
  4. LEXAPRO [Suspect]
     Indication: DEPRESSION
     Dosage: 30 MG QD PO
     Route: 048
     Dates: start: 20040715
  5. BIRTH CONTROL PILL [Concomitant]
  6. ATARAX [Concomitant]

REACTIONS (1)
  - ANAEMIA [None]
